FAERS Safety Report 9639404 (Version 1)
Quarter: 2013Q4

REPORT INFORMATION
  Report Type: Spontaneous
  Country: CH (occurrence: CH)
  Receive Date: 20131022
  Receipt Date: 20131022
  Transmission Date: 20140711
  Serious: Yes (Other)
  Sender: FDA-Public Use
  Company Number: PHHY2013CH115099

PATIENT
  Age: 36 Year
  Sex: Male

DRUGS (2)
  1. RIBAVIRIN [Suspect]
     Indication: CHRONIC HEPATITIS C
  2. PEGINTERFERON ALFA [Suspect]
     Indication: CHRONIC HEPATITIS C

REACTIONS (11)
  - Cholestasis [Recovered/Resolved]
  - Polydipsia [Recovered/Resolved]
  - Cutaneous sarcoidosis [Recovered/Resolved]
  - Papule [Recovered/Resolved]
  - Erythema [Recovered/Resolved]
  - Lymphadenopathy [Recovered/Resolved]
  - Angiotensin converting enzyme increased [Recovered/Resolved]
  - Polyuria [Recovered/Resolved]
  - Hypercalcaemia [Recovered/Resolved]
  - Retroperitoneal lymphadenopathy [Recovered/Resolved]
  - Lymphadenopathy mediastinal [Recovered/Resolved]
